FAERS Safety Report 13930211 (Version 1)
Quarter: 2017Q3

REPORT INFORMATION
  Report Type: Spontaneous
  Country: US (occurrence: US)
  Receive Date: 20170901
  Receipt Date: 20170901
  Transmission Date: 20171127
  Serious: Yes (Other)
  Sender: FDA-Public Use
  Company Number: US-SA-2017SA158103

PATIENT
  Age: 52 Year
  Sex: Female

DRUGS (2)
  1. TOUJEO [Suspect]
     Active Substance: INSULIN GLARGINE
     Dosage: DOSE:70 UNIT(S)
     Route: 051
     Dates: start: 201702
  2. SOLOSTAR [Suspect]
     Active Substance: DEVICE
     Dates: start: 201702

REACTIONS (2)
  - Product use issue [Unknown]
  - Deafness [Unknown]

NARRATIVE: CASE EVENT DATE: 2017
